FAERS Safety Report 14121797 (Version 1)
Quarter: 2017Q4

REPORT INFORMATION
  Report Type: Spontaneous
  Country: US (occurrence: US)
  Receive Date: 20171024
  Receipt Date: 20171024
  Transmission Date: 20180321
  Serious: Yes (Other)
  Sender: FDA-Public Use
  Company Number: US-MALLINCKRODT-T201704189

PATIENT
  Age: 62 Year
  Sex: Male

DRUGS (1)
  1. HYDROMORPHONE [Suspect]
     Active Substance: HYDROMORPHONE
     Indication: PRODUCT USED FOR UNKNOWN INDICATION
     Dosage: UNK
     Route: 013

REACTIONS (4)
  - Off label use [Unknown]
  - Incorrect route of drug administration [Unknown]
  - Drug abuse [Unknown]
  - Peripheral ischaemia [Unknown]
